FAERS Safety Report 25396094 (Version 1)
Quarter: 2025Q2

REPORT INFORMATION
  Report Type: Spontaneous
  Country: US (occurrence: US)
  Receive Date: 20250604
  Receipt Date: 20250604
  Transmission Date: 20250716
  Serious: Yes (Death, Hospitalization, Other)
  Sender: GRANULES PHARMACEUTICALS INC
  Company Number: US-GRANULES-US-2025GRALIT00272

PATIENT
  Age: 29 Year
  Sex: Male

DRUGS (2)
  1. COLCHICINE [Suspect]
     Active Substance: COLCHICINE
     Indication: Product used for unknown indication
     Route: 048
  2. CARVEDILOL [Suspect]
     Active Substance: CARVEDILOL
     Indication: Product used for unknown indication
     Route: 048

REACTIONS (12)
  - Multiple organ dysfunction syndrome [Fatal]
  - Acute respiratory distress syndrome [Fatal]
  - Toxicity to various agents [Fatal]
  - Distributive shock [Fatal]
  - Cardiogenic shock [Fatal]
  - Tachycardia [Fatal]
  - Mental status changes [Fatal]
  - Metabolic acidosis [Fatal]
  - Respiratory acidosis [Fatal]
  - Leukocytosis [Fatal]
  - Haemorrhage [Unknown]
  - Intentional overdose [Unknown]
